FAERS Safety Report 17442281 (Version 1)
Quarter: 2020Q1

REPORT INFORMATION
  Report Type: Spontaneous
  Country: FR (occurrence: FR)
  Receive Date: 20200220
  Receipt Date: 20200220
  Transmission Date: 20200409
  Serious: Yes (Hospitalization)
  Sender: FDA-Public Use
  Company Number: FR-NAPPMUNDI-GBR-2020-0075103

PATIENT
  Age: 90 Year
  Sex: Female
  Weight: 68 kg

DRUGS (9)
  1. LOXEN [Concomitant]
  2. ALDACTONE [Concomitant]
     Active Substance: SPIRONOLACTONE
  3. LEVOTHYROX [Concomitant]
     Active Substance: LEVOTHYROXINE
  4. AMIODARONE                         /00133102/ [Concomitant]
     Active Substance: AMIODARONE
  5. KARDEGIC [Concomitant]
     Active Substance: ASPIRIN DL-LYSINE
  6. DIFFU K [Concomitant]
     Active Substance: POTASSIUM CHLORIDE
  7. OXYCODONE HYDROCHLORIDE. [Suspect]
     Active Substance: OXYCODONE HYDROCHLORIDE
     Indication: PAIN
     Dosage: 15 MG, DAILY
     Route: 048
     Dates: start: 20200110, end: 20200123
  8. EUPRESSYL                          /00631801/ [Concomitant]
     Active Substance: URAPIDIL
  9. FUROSEMIDE. [Concomitant]
     Active Substance: FUROSEMIDE

REACTIONS (5)
  - Faecaloma [Recovered/Resolved]
  - Decreased appetite [Recovered/Resolved]
  - Abdominal pain [Recovered/Resolved]
  - Flatulence [Recovered/Resolved]
  - Constipation [Recovered/Resolved]

NARRATIVE: CASE EVENT DATE: 20200121
